FAERS Safety Report 8399746-2 (Version None)
Quarter: 2012Q2

REPORT INFORMATION
  Report Type: 
  Country: None (occurrence: None)
  Receive Date: 20120531
  Receipt Date: 20120529
  Transmission Date: 20120825
  Serious: Yes (Disabling, Other)
  Sender: FDA-Public Use
  Company Number: US-PFIZER INC-2012044916

PATIENT
  Sex: Female
  Weight: 113 kg

DRUGS (6)
  1. MOBIC [Concomitant]
     Indication: ARTHRITIS
     Dosage: 15 MG, 1X/DAY
  2. LYRICA [Suspect]
     Indication: FIBROMYALGIA
     Dosage: 50 MG, 3X/DAY
     Route: 048
     Dates: start: 20080101
  3. LISINOPRIL [Concomitant]
     Indication: HYPERTENSION
     Dosage: 40 MG, 1X/DAY
     Route: 048
  4. LOSARTAN POTASSIUM AND HYDROCHLOROTHIAZIDE [Concomitant]
     Dosage: 25MG/100MG ONCE DAILY
     Route: 048
  5. PAROXETINE [Concomitant]
     Dosage: 40 MG, 1X/DAY
     Route: 048
  6. PAXIL [Concomitant]
     Indication: DEPRESSION
     Dosage: 40 MG, 1X/DAY
     Route: 048

REACTIONS (4)
  - FALL [None]
  - ARTHROPATHY [None]
  - BACK PAIN [None]
  - TENDON RUPTURE [None]
